FAERS Safety Report 9109568 (Version 1)
Quarter: 2013Q1

REPORT INFORMATION
  Report Type: Report from Study
  Country: JP (occurrence: JP)
  Receive Date: 20130222
  Receipt Date: 20130222
  Transmission Date: 20140127
  Serious: Yes (Death, Hospitalization, Other)
  Sender: FDA-Public Use
  Company Number: JP-MERCK-2009SP036766

PATIENT
  Age: 54 Year
  Sex: Male
  Weight: 75 kg

DRUGS (31)
  1. TEMOZOLOMIDE [Suspect]
     Indication: ANAPLASTIC ASTROCYTOMA
     Dosage: 150 MG/SQM, QD
     Route: 048
     Dates: start: 20080130, end: 20080203
  2. TEMOZOLOMIDE [Suspect]
     Dosage: 150 MG/SQM, QD
     Route: 048
     Dates: start: 20080227, end: 20080302
  3. TEMOZOLOMIDE [Suspect]
     Dosage: 200 MG/SQM, QD
     Route: 048
     Dates: start: 20080409, end: 20080413
  4. TEMOZOLOMIDE [Suspect]
     Dosage: 200 MG/SQM, QD
     Route: 048
     Dates: start: 20080509, end: 20080513
  5. TEMOZOLOMIDE [Suspect]
     Dosage: 200 MG/SQM, QD
     Route: 048
     Dates: start: 20080606, end: 20080610
  6. TEMOZOLOMIDE [Suspect]
     Dosage: 200 MG/SQM, QD
     Route: 048
     Dates: start: 20080704, end: 20080708
  7. TEMOZOLOMIDE [Suspect]
     Dosage: 200 MG/SQM, QD
     Route: 048
     Dates: start: 20080801, end: 20080805
  8. TEMOZOLOMIDE [Suspect]
     Dosage: 200 MG/SQM, QD
     Route: 048
     Dates: start: 20080828, end: 20080901
  9. TEMOZOLOMIDE [Suspect]
     Dosage: 200 MG/SQM, QD
     Route: 048
     Dates: start: 20080926, end: 20080930
  10. TEMOZOLOMIDE [Suspect]
     Dosage: 200 MG/SQM, QD
     Route: 048
     Dates: start: 20081022, end: 20081026
  11. TEMOZOLOMIDE [Suspect]
     Dosage: 200 MG/SQM, QD
     Route: 048
     Dates: start: 20081119, end: 20081123
  12. TEMOZOLOMIDE [Suspect]
     Dosage: 200 MG/SQM, QD
     Route: 048
     Dates: start: 20081219, end: 20081223
  13. TEMOZOLOMIDE [Suspect]
     Dosage: 200 MG/SQM, QD
     Route: 048
     Dates: start: 20090121, end: 20090125
  14. TEMOZOLOMIDE [Suspect]
     Dosage: 200 MG/SQM, QD
     Route: 048
     Dates: start: 20090717, end: 20090721
  15. TEMOZOLOMIDE [Suspect]
     Dosage: 200 MG/SQM, QD
     Route: 048
     Dates: start: 20090814, end: 20090818
  16. TEMOZOLOMIDE [Suspect]
     Dosage: 200 MG/SQM, QD
     Route: 048
     Dates: start: 20090911, end: 20090915
  17. TEMOZOLOMIDE [Suspect]
     Dosage: 200 MG/SQM, QD
     Route: 048
     Dates: start: 20091009, end: 20091013
  18. TEMOZOLOMIDE [Suspect]
     Dosage: 200 MG/SQM, QD
     Route: 048
     Dates: start: 20091028, end: 20091101
  19. TEMOZOLOMIDE [Suspect]
     Dosage: 75 MG/SQM
     Route: 048
     Dates: start: 20071113, end: 20071229
  20. TEMOZOLOMIDE [Suspect]
     Dosage: 200 MG/SQM
     Route: 048
     Dates: start: 20091125, end: 20091129
  21. DEPAKENE [Suspect]
     Indication: PROPHYLAXIS
     Route: 048
  22. NAVOBAN [Concomitant]
     Indication: PROPHYLAXIS
     Dosage: WHEN TEMODARL WAS TAKEN
     Route: 048
     Dates: start: 20071113, end: 20091129
  23. SENNOSIDES [Concomitant]
     Indication: PROPHYLAXIS
     Dosage: UNK UNK, PRN
     Route: 048
     Dates: start: 20071116
  24. GASTER D [Concomitant]
     Indication: PROPHYLAXIS
     Dosage: DAILY DOSE UNKNOWN
     Route: 048
     Dates: start: 20090210, end: 20090812
  25. MAGNESIUM OXIDE [Concomitant]
     Indication: PROPHYLAXIS
     Dosage: UNK, PRN
     Route: 048
     Dates: start: 20071116, end: 20080226
  26. MAGNESIUM OXIDE [Concomitant]
     Dosage: UNK
     Route: 048
     Dates: start: 20081118, end: 20090812
  27. BAKTAR [Concomitant]
     Indication: ANTIFUNGAL PROPHYLAXIS
     Dosage: DAILY DOSE UNKNOWN
     Route: 048
     Dates: start: 20090213, end: 20090812
  28. ZANTAC [Concomitant]
     Indication: PROPHYLAXIS
     Dosage: DAILY DOSE UNKNOWN
     Route: 042
     Dates: start: 20090210, end: 20090213
  29. EXCEGRAN [Concomitant]
     Indication: PROPHYLAXIS
     Dosage: DAILY DOSE UNK
     Route: 048
     Dates: start: 20090428, end: 20090511
  30. ZYLORIC [Concomitant]
     Indication: PROPHYLAXIS
     Dosage: UNK
     Route: 048
     Dates: start: 20090428, end: 20090511
  31. MUCOSOLVAN [Concomitant]
     Indication: PROPHYLAXIS
     Dosage: DAILY DOSAGE UNKNOWN
     Route: 048
     Dates: start: 20100528, end: 20100610

REACTIONS (11)
  - Platelet count decreased [Recovered/Resolved]
  - Osteomyelitis [Not Recovered/Not Resolved]
  - Disease progression [Fatal]
  - Urinary tract infection [Recovering/Resolving]
  - Disease progression [Not Recovered/Not Resolved]
  - Decubitus ulcer [Not Recovered/Not Resolved]
  - Urinary tract infection [Recovered/Resolved]
  - Blood uric acid increased [Recovering/Resolving]
  - White blood cell count decreased [Recovered/Resolved]
  - Liver disorder [Recovering/Resolving]
  - Nausea [Recovered/Resolved]
